FAERS Safety Report 16391447 (Version 2)
Quarter: 2019Q3

REPORT INFORMATION
  Report Type: Spontaneous
  Country: CN (occurrence: CN)
  Receive Date: 20190604
  Receipt Date: 20190704
  Transmission Date: 20191004
  Serious: Yes (Death, Other)
  Sender: FDA-Public Use
  Company Number: CN-ROCHE-2322533

PATIENT
  Age: 55 Year
  Sex: Male

DRUGS (18)
  1. 5-FU [FLUOROURACIL] [Concomitant]
     Active Substance: FLUOROURACIL
     Indication: METASTASES TO LIVER
     Dosage: 46H
     Route: 040
     Dates: start: 20141107
  2. OXALIPLATIN. [Concomitant]
     Active Substance: OXALIPLATIN
     Indication: METASTASES TO LIVER
     Dosage: DAY1
     Route: 065
     Dates: start: 20140730
  3. 5-FU [FLUOROURACIL] [Concomitant]
     Active Substance: FLUOROURACIL
     Indication: ADENOCARCINOMA
     Dosage: DAY1
     Route: 042
     Dates: start: 20141107
  4. RALTITREXED [Concomitant]
     Active Substance: RALTITREXED
     Indication: ADENOCARCINOMA
     Dosage: DAY2
     Route: 065
     Dates: start: 20150306
  5. XELODA [Suspect]
     Active Substance: CAPECITABINE
     Indication: METASTASES TO LIVER
     Dosage: FROM DAY1 TO DAY14, Q21D
     Route: 048
     Dates: start: 20140730
  6. XELODA [Suspect]
     Active Substance: CAPECITABINE
     Dosage: FROM DAY1 TO DAY14, Q21D
     Route: 048
     Dates: start: 20150422
  7. OXALIPLATIN. [Concomitant]
     Active Substance: OXALIPLATIN
     Dosage: DAY1
     Route: 065
     Dates: start: 20150306
  8. OXALIPLATIN. [Concomitant]
     Active Substance: OXALIPLATIN
     Dosage: DAY1
     Route: 065
     Dates: start: 20150422
  9. OXALIPLATIN. [Concomitant]
     Active Substance: OXALIPLATIN
     Indication: ADENOCARCINOMA
     Dosage: DAY1
     Route: 065
     Dates: start: 20121101, end: 20130516
  10. RALTITREXED [Concomitant]
     Active Substance: RALTITREXED
     Indication: METASTASES TO LIVER
  11. CPT-11 [Concomitant]
     Active Substance: IRINOTECAN HYDROCHLORIDE
     Indication: METASTASES TO LIVER
  12. CALCIUM FOLINATE [Concomitant]
     Active Substance: LEUCOVORIN CALCIUM
     Indication: ADENOCARCINOMA
     Dosage: DAY1
     Route: 065
     Dates: start: 20141107
  13. GIMERACIL;OTERACIL POTASSIUM;TEGAFUR [Concomitant]
     Active Substance: GIMERACIL\OTERACIL\TEGAFUR
     Indication: ADENOCARCINOMA
     Dosage: FROM DAY1 TO DAY28
     Route: 065
     Dates: start: 20150106
  14. GIMERACIL;OTERACIL POTASSIUM;TEGAFUR [Concomitant]
     Active Substance: GIMERACIL\OTERACIL\TEGAFUR
     Indication: METASTASES TO LIVER
  15. XELODA [Suspect]
     Active Substance: CAPECITABINE
     Indication: ADENOCARCINOMA
     Dosage: FROM DAY1 TO DAY14, Q21D
     Route: 048
     Dates: start: 20121101, end: 20130516
  16. CPT-11 [Concomitant]
     Active Substance: IRINOTECAN HYDROCHLORIDE
     Indication: ADENOCARCINOMA
     Dosage: DAY1
     Route: 065
     Dates: start: 20141107
  17. CALCIUM FOLINATE [Concomitant]
     Active Substance: LEUCOVORIN CALCIUM
     Indication: METASTASES TO LIVER
  18. CATEQUENTINIB. [Concomitant]
     Active Substance: CATEQUENTINIB
     Indication: COLORECTAL CANCER METASTATIC
     Dosage: EVERY DAY
     Route: 065
     Dates: start: 20150915, end: 20160218

REACTIONS (5)
  - Biliary cyst [Unknown]
  - Hepatic function abnormal [Unknown]
  - Atelectasis [Unknown]
  - Pleural effusion [Unknown]
  - Lung disorder [Unknown]

NARRATIVE: CASE EVENT DATE: 20160224
